FAERS Safety Report 9661031 (Version 3)
Quarter: 2013Q4

REPORT INFORMATION
  Report Type: Spontaneous
  Country: US (occurrence: US)
  Receive Date: 20131031
  Receipt Date: 20131118
  Transmission Date: 20140711
  Serious: Yes (Death)
  Sender: FDA-Public Use
  Company Number: US-GLAXOSMITHKLINE-A1047639A

PATIENT
  Age: 77 Year
  Sex: 0

DRUGS (1)
  1. ADVAIR [Suspect]
     Indication: CHRONIC OBSTRUCTIVE PULMONARY DISEASE
     Route: 065
     Dates: start: 20120716

REACTIONS (3)
  - Death [Fatal]
  - Lung neoplasm malignant [Unknown]
  - Atrial fibrillation [Unknown]
